FAERS Safety Report 17482592 (Version 1)
Quarter: 2020Q1

REPORT INFORMATION
  Report Type: Spontaneous
  Country: FR (occurrence: FR)
  Receive Date: 20200302
  Receipt Date: 20200302
  Transmission Date: 20200409
  Serious: Yes (Hospitalization, Disabling, Congenital Anomaly, Other)
  Sender: FDA-Public Use
  Company Number: NVSC2020FR052645

PATIENT
  Sex: Male
  Weight: 1.93 kg

DRUGS (3)
  1. LAMOTRIGINE. [Suspect]
     Active Substance: LAMOTRIGINE
     Indication: EPILEPSY
     Dosage: 200 MG, UNK
     Route: 064
     Dates: start: 20051128, end: 20060703
  2. SPECIAFOLDINE [Concomitant]
     Active Substance: FOLIC ACID
     Indication: PROPHYLAXIS
     Dosage: UNK
     Route: 064
  3. DEPAKINE CHRONO [Suspect]
     Active Substance: VALPROATE SODIUM
     Indication: EPILEPSY
     Dosage: 1000 MG, UNK
     Route: 064
     Dates: start: 20051128, end: 20060703

REACTIONS (52)
  - Foetal anticonvulsant syndrome [Unknown]
  - Gastrointestinal malformation [Unknown]
  - Hyperthermia [Unknown]
  - Disturbance in attention [Unknown]
  - Eating disorder [Unknown]
  - Congenital knee deformity [Unknown]
  - Tachypnoea [Unknown]
  - Psychomotor skills impaired [Unknown]
  - Nasopharyngitis [Unknown]
  - Nasal disorder [Unknown]
  - Gastrooesophageal reflux disease [Unknown]
  - Cognitive disorder [Unknown]
  - Insomnia [Unknown]
  - Rhonchi [Unknown]
  - Wheezing [Unknown]
  - Allergy to arthropod sting [Unknown]
  - Affect lability [Unknown]
  - Speech disorder developmental [Unknown]
  - Sluggishness [Unknown]
  - Oropharyngeal pain [Unknown]
  - Educational problem [Unknown]
  - Hypermetropia [Unknown]
  - Executive dysfunction [Unknown]
  - Strabismus congenital [Unknown]
  - Bronchiolitis [Unknown]
  - Ear disorder [Unknown]
  - Skull malformation [Unknown]
  - Social problem [Unknown]
  - Foetal exposure during pregnancy [Unknown]
  - Language disorder [Unknown]
  - Behaviour disorder [Unknown]
  - Congenital astigmatism [Unknown]
  - Learning disorder [Unknown]
  - Tympanic membrane hyperaemia [Unknown]
  - Premature baby [Unknown]
  - Prominent epicanthal folds [Unknown]
  - Craniosynostosis [Unknown]
  - Hyperacusis [Unknown]
  - Hypotonia neonatal [Unknown]
  - Middle insomnia [Unknown]
  - Pharyngeal erythema [Unknown]
  - Flail chest [Unknown]
  - Respiratory disorder neonatal [Unknown]
  - Deafness unilateral [Unknown]
  - Vomiting [Unknown]
  - Crying [Unknown]
  - Dysgraphia [Unknown]
  - Mite allergy [Unknown]
  - Otitis media [Unknown]
  - Dysmorphism [Unknown]
  - Drooling [Unknown]
  - Ear infection [Unknown]

NARRATIVE: CASE EVENT DATE: 20080804
